FAERS Safety Report 5578765-5 (Version None)
Quarter: 2007Q4

REPORT INFORMATION
  Report Type: 
  Country: None (occurrence: None)
  Receive Date: 20071227
  Receipt Date: 20071227
  Transmission Date: 20080405
  Serious: Yes (Hospitalization)
  Sender: FDA-Public Use
  Company Number: None

PATIENT
  Sex: Male
  Weight: 58.2 kg

DRUGS (5)
  1. SUTENT [Suspect]
     Indication: METASTATIC RENAL CELL CARCINOMA
     Dosage: 50MG  DAILY, 2WKSON2WKOFF  ORAL
     Route: 048
  2. LOPERAMIDE HCL [Concomitant]
  3. ZOFRAN [Concomitant]
  4. HYDROCHLOROTHIAZIDE [Concomitant]
  5. DULCOLAX [Concomitant]

REACTIONS (2)
  - CARDIAC FAILURE CONGESTIVE [None]
  - CARDIOMYOPATHY [None]
